FAERS Safety Report 8196923-0 (Version None)
Quarter: 2012Q1

REPORT INFORMATION
  Report Type: 
  Country: None (occurrence: None)
  Receive Date: 20120309
  Receipt Date: 20120229
  Transmission Date: 20120608
  Serious: Yes (Hospitalization)
  Sender: FDA-Public Use
  Company Number: JP-EISAI INC-E7389-01830-SPO-JP

PATIENT
  Sex: Female
  Weight: 58 kg

DRUGS (9)
  1. HALAVEN [Suspect]
     Indication: METASTASES TO LYMPH NODES
     Route: 041
     Dates: start: 20120111, end: 20120118
  2. OXINORM [Concomitant]
     Route: 048
  3. LASIX [Concomitant]
     Route: 048
  4. HALAVEN [Suspect]
     Route: 041
     Dates: start: 20111212, end: 20111212
  5. HALAVEN [Suspect]
     Route: 041
     Dates: start: 20111128, end: 20111128
  6. FERROUS CITRATE [Concomitant]
     Route: 048
  7. OXYCONTIN [Concomitant]
     Route: 048
  8. HALAVEN [Suspect]
     Indication: METASTASES TO LIVER
  9. MAGNESIUM SULFATE [Concomitant]
     Route: 048

REACTIONS (2)
  - POSTOPERATIVE WOUND INFECTION [None]
  - ANAEMIA [None]
